FAERS Safety Report 5003909-3 (Version None)
Quarter: 2006Q2

REPORT INFORMATION
  Report Type: 
  Country: None (occurrence: None)
  Receive Date: 20060515
  Receipt Date: 20060508
  Transmission Date: 20061013
  Serious: Yes (Other)
  Sender: FDA-Public Use
  Company Number: 2006-04-1279

PATIENT
  Age: 40 Year
  Sex: Male
  Weight: 78 kg

DRUGS (4)
  1. TEMODAL [Suspect]
     Indication: OLIGODENDROGLIOMA
     Dosage: 175 MG/M^2 ORAL
     Route: 048
     Dates: start: 20060327, end: 20060331
  2. DEXAMETHASONE TAB [Concomitant]
  3. ONDANSETRON HCL [Concomitant]
  4. OMEPRAZOLE [Concomitant]

REACTIONS (2)
  - BONE MARROW TOXICITY [None]
  - THROMBOCYTOPENIA [None]
